FAERS Safety Report 7061536-0 (Version None)
Quarter: 2010Q4

REPORT INFORMATION
  Report Type: 
  Country: None (occurrence: None)
  Receive Date: 20101026
  Receipt Date: 20101013
  Transmission Date: 20110411
  Serious: Yes (Hospitalization, Other)
  Sender: FDA-Public Use
  Company Number: US-ELI_LILLY_AND_COMPANY-US201002003682

PATIENT
  Sex: Female

DRUGS (12)
  1. FORTEO [Suspect]
     Indication: OSTEOPOROSIS
     Dosage: 20 UG, DAILY (1/D)
     Route: 065
  2. ASPIRIN [Concomitant]
     Dosage: UNK, DAILY (1/D)
     Route: 065
  3. NEXIUM [Concomitant]
     Dosage: UNK, DAILY (1/D)
     Route: 065
  4. KEPPRA [Concomitant]
     Dosage: UNK, ONE IN THE MORNING AND ONE AT NIGHT
     Route: 065
  5. SERTRALINE [Concomitant]
     Dosage: UNK, UNKNOWN
     Route: 065
  6. CALCIUM [Concomitant]
     Dosage: UNK, UNKNOWN
     Route: 065
  7. MAGNESIUM [Concomitant]
     Dosage: UNK, UNKNOWN
     Route: 065
  8. MULTIVITAMINS PLUS IRON [Concomitant]
     Dosage: UNK, UNKNOWN
     Route: 065
  9. VITAMIN D [Concomitant]
     Dosage: UNK, UNKNOWN
     Route: 065
  10. FISH OIL [Concomitant]
     Dosage: UNK, UNKNOWN
     Route: 065
  11. BUDEPRION [Concomitant]
     Dosage: UNK, UNKNOWN
     Route: 065
  12. SIMVASTATIN [Concomitant]
     Dosage: UNK, UNKNOWN
     Route: 065

REACTIONS (5)
  - CEREBROVASCULAR ACCIDENT [None]
  - FALL [None]
  - MEMORY IMPAIRMENT [None]
  - UPPER LIMB FRACTURE [None]
  - VISUAL FIELD DEFECT [None]
